FAERS Safety Report 17075002 (Version 1)
Quarter: 2019Q4

REPORT INFORMATION
  Report Type: Spontaneous
  Country: US (occurrence: US)
  Receive Date: 20191126
  Receipt Date: 20191126
  Transmission Date: 20200122
  Serious: No
  Sender: FDA-Public Use
  Company Number: US-JNJFOC-20191136588

PATIENT
  Age: 18 Year
  Sex: Male
  Weight: 80.81 kg

DRUGS (1)
  1. REMICADE [Suspect]
     Active Substance: INFLIXIMAB
     Indication: PRODUCT USED FOR UNKNOWN INDICATION
     Route: 042

REACTIONS (4)
  - Vomiting [Unknown]
  - Antibody test positive [Unknown]
  - Headache [Unknown]
  - Nausea [Unknown]
